FAERS Safety Report 5271882-9 (Version None)
Quarter: 2007Q1

REPORT INFORMATION
  Report Type: 
  Country: None (occurrence: None)
  Receive Date: 20070316
  Receipt Date: 20070228
  Transmission Date: 20070707
  Serious: Yes (Death, Hospitalization)
  Sender: FDA-Public Use
  Company Number: DSA_29489_2007

PATIENT
  Sex: Male

DRUGS (3)
  1. ENALAPRIL MALEATE [Suspect]
     Dosage: DF;
  2. ANTIHYPERTENSIVES [Concomitant]
  3. PERORAL ANTIDIABETICS [Concomitant]

REACTIONS (5)
  - ANGIOEDEMA [None]
  - BRAIN DAMAGE [None]
  - CARDIAC ARREST [None]
  - OBSTRUCTIVE AIRWAYS DISORDER [None]
  - RESPIRATORY ARREST [None]
